FAERS Safety Report 5812906-7 (Version None)
Quarter: 2008Q3

REPORT INFORMATION
  Report Type: 
  Country: None (occurrence: None)
  Receive Date: 20080717
  Receipt Date: 20070702
  Transmission Date: 20090109
  Serious: No
  Sender: FDA-Public Use
  Company Number: A0660876A

PATIENT

DRUGS (2)
  1. NICORETTE [Suspect]
     Dates: start: 19990501
  2. NICORETTE [Suspect]

REACTIONS (2)
  - GASTRIC DISORDER [None]
  - INTENTIONAL DRUG MISUSE [None]
